FAERS Safety Report 12312831 (Version 1)
Quarter: 2016Q2

REPORT INFORMATION
  Report Type: Other
  Country: IT (occurrence: IT)
  Receive Date: 20160428
  Receipt Date: 20160428
  Transmission Date: 20160815
  Serious: Yes (Hospitalization, Other)
  Sender: FDA-Public Use
  Company Number: IT-APOTEX-2016AP008006

PATIENT
  Sex: Male

DRUGS (4)
  1. EN [Suspect]
     Active Substance: DELORAZEPAM
     Indication: PANIC ATTACK
     Dosage: 5 DF, CYC
     Route: 064
  2. EUTIROX [Concomitant]
     Active Substance: LEVOTHYROXINE SODIUM
     Indication: PRODUCT USED FOR UNKNOWN INDICATION
     Route: 065
  3. PROGEFFIK [Concomitant]
     Active Substance: PROGESTERONE
     Indication: PRODUCT USED FOR UNKNOWN INDICATION
     Route: 065
  4. PAROXETINE. [Suspect]
     Active Substance: PAROXETINE
     Indication: PANIC ATTACK
     Dosage: 20 MG, QD
     Route: 064

REACTIONS (3)
  - Foetal exposure during pregnancy [Unknown]
  - Hydronephrosis [Recovered/Resolved]
  - Talipes [Recovered/Resolved]

NARRATIVE: CASE EVENT DATE: 20120802
